FAERS Safety Report 12906687 (Version 3)
Quarter: 2016Q4

REPORT INFORMATION
  Report Type: Report from Study
  Country: US (occurrence: US)
  Receive Date: 20161103
  Receipt Date: 20161128
  Transmission Date: 20170207
  Serious: Yes (Other)
  Sender: FDA-Public Use
  Company Number: US-JNJFOC-20161101254

PATIENT
  Sex: Male

DRUGS (16)
  1. PRAVASTATIN. [Concomitant]
     Active Substance: PRAVASTATIN
  2. OCUVITE [Concomitant]
     Active Substance: VITAMINS
  3. CALCIUM + VIT D [Concomitant]
     Active Substance: CALCIUM\VITAMIN D
  4. BIOTIN [Concomitant]
     Active Substance: BIOTIN
  5. IMBRUVICA [Suspect]
     Active Substance: IBRUTINIB
     Indication: WALDENSTROM^S MACROGLOBULINAEMIA
     Route: 048
     Dates: start: 20160910
  6. PRILOSEC [Concomitant]
     Active Substance: OMEPRAZOLE MAGNESIUM
  7. ZONISAMIDE. [Concomitant]
     Active Substance: ZONISAMIDE
  8. IMBRUVICA [Suspect]
     Active Substance: IBRUTINIB
     Indication: WALDENSTROM^S MACROGLOBULINAEMIA
     Route: 048
     Dates: start: 20160912
  9. TURMERIC [Concomitant]
     Active Substance: TURMERIC
  10. CYANOCOBALAMIN. [Concomitant]
     Active Substance: CYANOCOBALAMIN
  11. LEVETIRACETAM. [Concomitant]
     Active Substance: LEVETIRACETAM
  12. BABY ASPIRIN [Concomitant]
     Active Substance: ASPIRIN
  13. ASCORBIC ACID. [Concomitant]
     Active Substance: ASCORBIC ACID
  14. BIFIDOBACTERIUM LACTIS [Concomitant]
  15. TIMOLOL. [Concomitant]
     Active Substance: TIMOLOL
     Route: 047
  16. COQ10 [Concomitant]
     Active Substance: UBIDECARENONE

REACTIONS (6)
  - Tremor [Unknown]
  - Malaise [Unknown]
  - Adverse event [Unknown]
  - Diarrhoea [Unknown]
  - Faeces soft [Unknown]
  - Macular degeneration [Unknown]
